FAERS Safety Report 7573781-6 (Version None)
Quarter: 2011Q2

REPORT INFORMATION
  Report Type: 
  Country: None (occurrence: None)
  Receive Date: 20110627
  Receipt Date: 20110621
  Transmission Date: 20111010
  Serious: Yes (Death)
  Sender: FDA-Public Use
  Company Number: CA-ROCHE-785493

PATIENT
  Sex: Female

DRUGS (6)
  1. DECADRON [Concomitant]
  2. BEVACIZUMAB [Suspect]
     Route: 042
     Dates: start: 20110324, end: 20110505
  3. TUSSIONEX [Concomitant]
  4. PREDNISONE [Concomitant]
  5. ALIMTA [Concomitant]
  6. SYNTHROID [Concomitant]

REACTIONS (1)
  - CEREBROVASCULAR ACCIDENT [None]
